FAERS Safety Report 7934315-7 (Version None)
Quarter: 2011Q4

REPORT INFORMATION
  Report Type: 
  Country: None (occurrence: None)
  Receive Date: 20111118
  Receipt Date: 20111103
  Transmission Date: 20120403
  Serious: Yes (Hospitalization)
  Sender: FDA-Public Use
  Company Number: 2011MA016230

PATIENT
  Age: 89 Year
  Sex: Female

DRUGS (4)
  1. DICLOFENAC SODIUM [Suspect]
     Indication: PAIN
     Dosage: 50 MG;TID;PO
     Route: 048
     Dates: start: 20110131, end: 20110209
  2. CANDESARTAN CILEXETIL [Concomitant]
  3. IBANDRONIC [Concomitant]
  4. ACETAMINOPHEN [Concomitant]

REACTIONS (3)
  - BACK PAIN [None]
  - HAEMATEMESIS [None]
  - MELAENA [None]
